FAERS Safety Report 8069736-8 (Version None)
Quarter: 2012Q1

REPORT INFORMATION
  Report Type: 
  Country: None (occurrence: None)
  Receive Date: 20120125
  Receipt Date: 20120113
  Transmission Date: 20120608
  Serious: Yes (Other)
  Sender: FDA-Public Use
  Company Number: DK-ABBOTT-12P-044-0896679-00

PATIENT
  Sex: Male

DRUGS (1)
  1. TESTOSTERONE [Suspect]
     Indication: TESTICULAR DISORDER
     Dosage: GEL
     Route: 062
     Dates: start: 20080105

REACTIONS (2)
  - PENILE SIZE REDUCED [None]
  - SUICIDAL IDEATION [None]
